FAERS Safety Report 6335525-5 (Version None)
Quarter: 2009Q3

REPORT INFORMATION
  Report Type: 
  Country: None (occurrence: None)
  Receive Date: 20090831
  Receipt Date: 20090820
  Transmission Date: 20100115
  Serious: Yes (Disabling, Other)
  Sender: FDA-Public Use
  Company Number: JP-PFIZER INC-2009245991

PATIENT
  Age: 56 Year

DRUGS (9)
  1. GABAPEN [Suspect]
     Indication: ABDOMINAL PAIN
     Dosage: 200MG/DAY BEFORE BEDTIME
  2. GABAPEN [Suspect]
     Indication: BACK PAIN
  3. GABAPEN [Suspect]
     Indication: PAIN IN EXTREMITY
  4. GABAPEN [Suspect]
     Indication: NEURALGIA
  5. NICERGOLINE [Suspect]
     Indication: PAIN
     Route: 048
  6. MORPHINE HCL ELIXIR [Suspect]
     Indication: PAIN
     Dosage: 30 MG, 1X/DAY
     Route: 048
  7. CLONAZEPAM [Suspect]
     Indication: PAIN
     Route: 048
  8. RISPERIDONE [Suspect]
     Indication: PAIN
     Route: 048
  9. FENTANYL [Concomitant]
     Indication: PAIN
     Dosage: 50 MG, PER THREE DAYS
     Route: 062

REACTIONS (4)
  - DELIRIUM [None]
  - DRUG DEPENDENCE [None]
  - DRUG INEFFECTIVE [None]
  - OVERDOSE [None]
